FAERS Safety Report 7018857-7 (Version None)
Quarter: 2010Q3

REPORT INFORMATION
  Report Type: 
  Country: None (occurrence: None)
  Receive Date: 20100928
  Receipt Date: 20100921
  Transmission Date: 20110219
  Serious: Yes (Life-Threatening, Hospitalization)
  Sender: FDA-Public Use
  Company Number: US-BAYER-201034383NA

PATIENT
  Age: 49 Year
  Sex: Male

DRUGS (18)
  1. AVELOX [Suspect]
     Indication: PNEUMONIA
     Dosage: TOTAL DAILY DOSE: 400 MG  UNIT DOSE: 400 MG
     Route: 048
     Dates: start: 20100920, end: 20100920
  2. WELCHOL [Concomitant]
  3. VYTORIN [Concomitant]
  4. ACTOS [Concomitant]
  5. TESTOSTERONE [Concomitant]
  6. ASPIRIN [Concomitant]
  7. LISINOPRIL [Concomitant]
  8. DEMADEX [Concomitant]
  9. MAXZIDE [Concomitant]
  10. ALLOPURINOL [Concomitant]
  11. PAXIL [Concomitant]
  12. PROTONIX [Concomitant]
  13. JANUMET [Concomitant]
  14. SYNTHROID [Concomitant]
  15. K-DUR [Concomitant]
  16. VITAMIN B-12 [Concomitant]
  17. BYSTOLIC [Concomitant]
  18. TRILIPIX [Concomitant]

REACTIONS (2)
  - ANAPHYLACTIC REACTION [None]
  - DYSPNOEA [None]
